FAERS Safety Report 18632555 (Version 1)
Quarter: 2020Q4

REPORT INFORMATION
  Report Type: Spontaneous
  Country: IN (occurrence: IN)
  Receive Date: 20201218
  Receipt Date: 20201218
  Transmission Date: 20210114
  Serious: Yes (Hospitalization)
  Sender: FDA-Public Use
  Company Number: IN-LUPIN PHARMACEUTICALS INC.-2020-10443

PATIENT
  Age: 8 Year
  Sex: Male

DRUGS (2)
  1. IMMUNE GLOBULIN (IMMUNOGLOBULINS NOS) [Suspect]
     Active Substance: IMMUNE GLOBULIN NOS
     Indication: ACUTE DISSEMINATED ENCEPHALOMYELITIS
     Dosage: 1 GRAM PER KILOGRAM, QD
     Route: 042
  2. METHYLPREDNISOLONE. [Suspect]
     Active Substance: METHYLPREDNISOLONE
     Indication: ACUTE DISSEMINATED ENCEPHALOMYELITIS
     Dosage: 750 MILLIGRAM, QD, INJECTION
     Route: 065

REACTIONS (1)
  - Drug ineffective [Unknown]
